FAERS Safety Report 5290783-3 (Version None)
Quarter: 2007Q2

REPORT INFORMATION
  Report Type: 
  Country: None (occurrence: None)
  Receive Date: 20070409
  Receipt Date: 20070327
  Transmission Date: 20071010
  Serious: Yes (Other)
  Sender: FDA-Public Use
  Company Number: US-PFIZER INC-2007002719

PATIENT
  Age: 40 Year
  Sex: Female
  Weight: 56.7 kg

DRUGS (3)
  1. NEURONTIN [Suspect]
     Indication: ANXIETY
     Route: 048
  2. EFFEXOR [Suspect]
     Indication: AFFECTIVE DISORDER
     Route: 048
  3. EFFEXOR [Suspect]
     Indication: DEPRESSION

REACTIONS (3)
  - ANTIMITOCHONDRIAL ANTIBODY POSITIVE [None]
  - COGNITIVE DISORDER [None]
  - SYSTEMIC LUPUS ERYTHEMATOSUS [None]
